FAERS Safety Report 16269443 (Version 1)
Quarter: 2019Q2

REPORT INFORMATION
  Report Type: Spontaneous
  Country: US (occurrence: US)
  Receive Date: 20190503
  Receipt Date: 20190503
  Transmission Date: 20190711
  Serious: No
  Sender: FDA-Public Use
  Company Number: US-009507513-1905USA000464

PATIENT
  Sex: Male

DRUGS (1)
  1. NASONEX [Suspect]
     Active Substance: MOMETASONE FUROATE
     Dosage: UNK
     Dates: start: 2019

REACTIONS (4)
  - Product quality issue [Unknown]
  - No adverse event [Unknown]
  - Expired product administered [Unknown]
  - Poor quality device used [Unknown]

NARRATIVE: CASE EVENT DATE: 2019
